FAERS Safety Report 5778543-8 (Version None)
Quarter: 2008Q2

REPORT INFORMATION
  Report Type: 
  Country: None (occurrence: None)
  Receive Date: 20080618
  Receipt Date: 20080213
  Transmission Date: 20081010
  Serious: No
  Sender: FDA-Public Use
  Company Number: 08H-163-0313879-00

PATIENT
  Sex: Female

DRUGS (1)
  1. PANHEPRIN [Suspect]
     Dates: start: 20080101, end: 20080101

REACTIONS (1)
  - HYPERSENSITIVITY [None]
